FAERS Safety Report 10566182 (Version 1)
Quarter: 2014Q4

REPORT INFORMATION
  Report Type: Spontaneous
  Country: BR (occurrence: BR)
  Receive Date: 20141105
  Receipt Date: 20141105
  Transmission Date: 20150529
  Serious: Yes (Other)
  Sender: FDA-Public Use
  Company Number: BR-PFIZER INC-2014303787

PATIENT
  Sex: Female

DRUGS (1)
  1. LYRICA [Suspect]
     Active Substance: PREGABALIN
     Indication: PAIN
     Dosage: UNK
     Dates: start: 2009

REACTIONS (8)
  - Mental disorder [Unknown]
  - Abdominal distension [Not Recovered/Not Resolved]
  - Somnambulism [Unknown]
  - Gastrointestinal disorder [Unknown]
  - Flatulence [Not Recovered/Not Resolved]
  - Loss of consciousness [Unknown]
  - Syncope [Unknown]
  - Feeling abnormal [Not Recovered/Not Resolved]
